FAERS Safety Report 13480982 (Version 1)
Quarter: 2017Q2

REPORT INFORMATION
  Report Type: Spontaneous
  Country: JP (occurrence: JP)
  Receive Date: 20170425
  Receipt Date: 20170425
  Transmission Date: 20170830
  Serious: Yes (Hospitalization, Other)
  Sender: FDA-Public Use
  Company Number: JP-BAUSCH-BL-2017-010734

PATIENT
  Age: 65 Year
  Sex: Female
  Weight: 37.6 kg

DRUGS (2)
  1. PREDNISOLONE. [Suspect]
     Active Substance: PREDNISOLONE
     Indication: SJOGREN^S SYNDROME
  2. PREDNISOLONE. [Suspect]
     Active Substance: PREDNISOLONE
     Indication: SYSTEMIC LUPUS ERYTHEMATOSUS
     Route: 048

REACTIONS (1)
  - Arteriosclerosis [Unknown]
